FAERS Safety Report 13776472 (Version 7)
Quarter: 2017Q4

REPORT INFORMATION
  Report Type: Report from Study
  Country: US (occurrence: US)
  Receive Date: 20170720
  Receipt Date: 20171003
  Transmission Date: 20180320
  Serious: Yes (Other)
  Sender: FDA-Public Use
  Company Number: US-ACTELION-A-US2017-156759

PATIENT
  Age: 64 Year
  Sex: Female
  Weight: 77.55 kg

DRUGS (2)
  1. ADEMPAS [Concomitant]
     Active Substance: RIOCIGUAT
  2. OPSUMIT [Suspect]
     Active Substance: MACITENTAN
     Indication: PULMONARY ARTERIAL HYPERTENSION
     Dosage: 10 MG, QD
     Route: 048
     Dates: start: 20170621

REACTIONS (11)
  - Deafness unilateral [Not Recovered/Not Resolved]
  - Dysacusis [Unknown]
  - Swelling face [Unknown]
  - Dyspnoea exertional [Unknown]
  - Swelling [Unknown]
  - Dizziness [Unknown]
  - Depression [Unknown]
  - Gastrooesophageal reflux disease [Unknown]
  - Oral herpes [Unknown]
  - Hypoacusis [Unknown]
  - Nasal congestion [Unknown]

NARRATIVE: CASE EVENT DATE: 20170711
